FAERS Safety Report 21356010 (Version 3)
Quarter: 2023Q1

REPORT INFORMATION
  Report Type: Spontaneous
  Country: US (occurrence: US)
  Receive Date: 20220920
  Receipt Date: 20230302
  Transmission Date: 20230417
  Serious: No
  Sender: FDA-Public Use
  Company Number: US-VIIV HEALTHCARE LIMITED-US2022AMR130503

PATIENT
  Age: 41 Year
  Sex: Male

DRUGS (11)
  1. RILPIVIRINE [Suspect]
     Active Substance: RILPIVIRINE
     Indication: HIV infection
     Dosage: UNK UNK, Z (EVERY 2 MONTH)
     Route: 030
     Dates: start: 20220527, end: 20220906
  2. CABOTEGRAVIR [Suspect]
     Active Substance: CABOTEGRAVIR
     Indication: HIV infection
     Dosage: UNK UNK, Z (EVERY 2 MONTH)
     Route: 030
     Dates: start: 20220527, end: 20220906
  3. TROGARZO [Concomitant]
     Active Substance: IBALIZUMAB-UIYK
     Indication: HIV infection
     Dosage: 800 MG, 2 WEEKS
     Route: 042
  4. ILUMYA [TILDRAKIZUMAB] [Concomitant]
     Indication: Product used for unknown indication
     Dosage: 100 MG GIVEN OF 3 MONTHS
     Route: 058
     Dates: start: 20220621
  5. ANTINEOPLASTIC MONOCLONAL ANTIBODIES [Concomitant]
  6. SINGULAIR [Concomitant]
     Active Substance: MONTELUKAST SODIUM
     Indication: Product used for unknown indication
     Dosage: 10 MG, HS
     Route: 048
  7. LEXAPRO [Concomitant]
     Active Substance: ESCITALOPRAM OXALATE
     Indication: Product used for unknown indication
     Dosage: 20 MG, QD
     Route: 048
  8. DAPSONE [Concomitant]
     Active Substance: DAPSONE
     Indication: Product used for unknown indication
     Dosage: 100 MG, QD
     Route: 048
  9. NORVASC [Concomitant]
     Active Substance: AMLODIPINE BESYLATE
     Indication: Product used for unknown indication
     Dosage: 5 MG, QD
     Route: 048
  10. XYZAL [Concomitant]
     Active Substance: LEVOCETIRIZINE DIHYDROCHLORIDE
     Indication: Product used for unknown indication
     Dosage: 5 MG, QD
     Route: 048
  11. IBALIZUMAB [Concomitant]
     Active Substance: IBALIZUMAB
     Indication: Product used for unknown indication
     Dosage: 800 MG, 2 WEEKS
     Route: 042

REACTIONS (5)
  - Virologic failure [Unknown]
  - Off label use [Unknown]
  - Viral load increased [Unknown]
  - Drug ineffective [Unknown]
  - Product use issue [Unknown]

NARRATIVE: CASE EVENT DATE: 20220101
